FAERS Safety Report 9169843 (Version 2)
Quarter: 2013Q1

REPORT INFORMATION
  Report Type: Spontaneous
  Country: US (occurrence: US)
  Receive Date: 20130319
  Receipt Date: 20130326
  Transmission Date: 20140127
  Serious: Yes (Hospitalization, Other)
  Sender: FDA-Public Use
  Company Number: US-AMGEN-USASP2013018220

PATIENT
  Age: 1 Year
  Sex: Male

DRUGS (1)
  1. ENBREL [Suspect]
     Dosage: 50 MG, QWK
     Route: 064
     Dates: start: 20101026, end: 201106

REACTIONS (3)
  - Premature baby [Unknown]
  - Foetal heart rate decreased [Unknown]
  - Low birth weight baby [Recovered/Resolved]
